FAERS Safety Report 21308435 (Version 1)
Quarter: 2022Q3

REPORT INFORMATION
  Report Type: Spontaneous
  Country: US (occurrence: None)
  Receive Date: 20220908
  Receipt Date: 20220908
  Transmission Date: 20221027
  Serious: Yes (Life-Threatening, Hospitalization, Disabling)
  Sender: FDA-Public Use
  Company Number: None

PATIENT

DRUGS (1)
  1. NARCAN NALOXONE HCI [Suspect]
     Active Substance: NALOXONE HYDROCHLORIDE

REACTIONS (10)
  - Scoliosis [None]
  - Mastoid effusion [None]
  - Hiatus hernia [None]
  - Diverticulitis [None]
  - Diverticulum [None]
  - Fibromyalgia [None]
  - Ulcer [None]
  - Haemorrhoids [None]
  - Irritable bowel syndrome [None]
  - Obsessive-compulsive disorder [None]

NARRATIVE: CASE EVENT DATE: 20010427
